FAERS Safety Report 17606835 (Version 1)
Quarter: 2020Q1

REPORT INFORMATION
  Report Type: Spontaneous
  Country: CH (occurrence: CH)
  Receive Date: 20200331
  Receipt Date: 20200331
  Transmission Date: 20200409
  Serious: Yes (Other)
  Sender: FDA-Public Use
  Company Number: CH-MYLANLABS-2020M1010899

PATIENT
  Sex: Female

DRUGS (5)
  1. GEVILON [Concomitant]
     Active Substance: GEMFIBROZIL
     Dosage: UNK
  2. LIMBITROL [Suspect]
     Active Substance: AMITRIPTYLINE\CHLORDIAZEPOXIDE
     Indication: DEPRESSION
     Dosage: 0.5 DOSAGE FORM, QD
  3. LIMBITROL [Suspect]
     Active Substance: AMITRIPTYLINE\CHLORDIAZEPOXIDE
     Dosage: 6.25/2.5 ONCE A DAY (0-1/2-0-0)
  4. XALATAN [Concomitant]
     Active Substance: LATANOPROST
     Dosage: 3X2
  5. PONSTAN [Concomitant]
     Active Substance: MEFENAMIC ACID
     Indication: PRODUCT USED FOR UNKNOWN INDICATION
     Dosage: IN RESERVE

REACTIONS (2)
  - Breast cancer [Unknown]
  - Off label use [Unknown]
